FAERS Safety Report 6082647-2 (Version None)
Quarter: 2009Q1

REPORT INFORMATION
  Report Type: 
  Country: None (occurrence: None)
  Receive Date: 20090218
  Receipt Date: 20090205
  Transmission Date: 20090719
  Serious: Yes (Other)
  Sender: FDA-Public Use
  Company Number: BR-PFIZER INC-2009157721

PATIENT

DRUGS (4)
  1. FRONTAL [Suspect]
     Indication: PANIC DISORDER
     Dosage: .5 MG, 1X/DAY
     Route: 048
     Dates: start: 20010101
  2. FRONTAL [Suspect]
     Indication: INSOMNIA
  3. SERTRALINE HCL [Suspect]
     Dosage: 50 MG, 1X/DAY
     Route: 048
     Dates: start: 20010101
  4. CORGARD [Concomitant]
     Dosage: UNK

REACTIONS (4)
  - DRUG INEFFECTIVE [None]
  - HEART RATE INCREASED [None]
  - HYPERTENSION [None]
  - MALAISE [None]
